FAERS Safety Report 8242500-2 (Version None)
Quarter: 2012Q1

REPORT INFORMATION
  Report Type: 
  Country: None (occurrence: None)
  Receive Date: 20120329
  Receipt Date: 20120322
  Transmission Date: 20120608
  Serious: Yes (Hospitalization)
  Sender: FDA-Public Use
  Company Number: SE-PURDUE-GBR-2012-0010108

PATIENT
  Sex: Female

DRUGS (9)
  1. ASPIRIN [Concomitant]
  2. SYMBICORT [Concomitant]
  3. SPIRIVA [Concomitant]
  4. OXYCONTIN [Suspect]
     Indication: AMPUTATION
     Dosage: UNK
     Dates: start: 20120119
  5. SPIRONOLACTONE [Concomitant]
  6. SIMVASTATIN [Concomitant]
  7. NEURONTIN [Interacting]
     Indication: AMPUTATION
     Dosage: UNK
  8. ALVEDON [Concomitant]
  9. LEVOTHYROXINE SODIUM [Concomitant]

REACTIONS (6)
  - DRUG INTERACTION [None]
  - SEPSIS [None]
  - CONFUSIONAL STATE [None]
  - HYPOTENSION [None]
  - DIARRHOEA [None]
  - VOMITING [None]
